FAERS Safety Report 19658236 (Version 1)
Quarter: 2021Q3

REPORT INFORMATION
  Report Type: Other
  Country: ES (occurrence: ES)
  Receive Date: 20210804
  Receipt Date: 20210804
  Transmission Date: 20211014
  Serious: Yes (Death, Hospitalization)
  Sender: FDA-Public Use
  Company Number: ES-APPCO PHARMA LLC-2114633

PATIENT
  Age: 11 Year
  Sex: Female

DRUGS (8)
  1. HYDROXYCHLOROQUINE SULFATE. [Suspect]
     Active Substance: HYDROXYCHLOROQUINE SULFATE
     Indication: PRODUCT USED FOR UNKNOWN INDICATION
     Route: 065
  2. REMDESIVIR. [Suspect]
     Active Substance: REMDESIVIR
     Route: 050
  3. TACROLIMUS. [Concomitant]
     Active Substance: TACROLIMUS
  4. IMMUNOGLOBULINS [Concomitant]
  5. TOCILIZUMAB. [Suspect]
     Active Substance: TOCILIZUMAB
  6. METHYLPREDNISOLONE PULSES [Concomitant]
     Active Substance: METHYLPREDNISOLONE
     Route: 065
  7. MMF [Concomitant]
     Active Substance: MYCOPHENOLATE MOFETIL
  8. CYCLOPHOSPHAMIDE. [Concomitant]
     Active Substance: CYCLOPHOSPHAMIDE

REACTIONS (6)
  - Mechanical ventilation [Unknown]
  - Sepsis [Unknown]
  - Renal failure [Unknown]
  - Respiratory failure [Unknown]
  - Shock [Unknown]
  - Death [Fatal]
